FAERS Safety Report 20727876 (Version 1)
Quarter: 2022Q2

REPORT INFORMATION
  Report Type: Spontaneous
  Country: US (occurrence: US)
  Receive Date: 20220419
  Receipt Date: 20220419
  Transmission Date: 20220721
  Serious: Yes (Death)
  Sender: FDA-Public Use
  Company Number: US-STRIDES ARCOLAB LIMITED-2022SP004124

PATIENT
  Age: 67 Year
  Sex: Male

DRUGS (5)
  1. ETOPOSIDE [Suspect]
     Active Substance: ETOPOSIDE
     Indication: Post transplant lymphoproliferative disorder
     Dosage: UNK,CYCLICAL,SIX CYCLES OF EPOCH THERAPY,AS A PART OF EPOCH THERAPY
     Route: 065
  2. PREDNISOLONE [Suspect]
     Active Substance: PREDNISOLONE
     Indication: Post transplant lymphoproliferative disorder
     Dosage: UNK, CYCLICAL, SIX CYCLES OF EPOCH THERAPY,AS A PART OF EPOCH THERAPY
     Route: 065
  3. DOXORUBICIN [Suspect]
     Active Substance: DOXORUBICIN
     Indication: Post transplant lymphoproliferative disorder
     Dosage: UNK, CYCLICAL, SIX CYCLES OF EPOCH THERAPY,AS A PART OF EPOCH THERAPY
     Route: 065
  4. VINCRISTINE [Suspect]
     Active Substance: VINCRISTINE
     Indication: Post transplant lymphoproliferative disorder
     Dosage: UNK, CYCLICAL, (SIX CYCLES OF EPOCH THERAPY,AS A PART OF EPOCH THERAPY)
     Route: 065
  5. CYCLOPHOSPHAMIDE [Suspect]
     Active Substance: CYCLOPHOSPHAMIDE
     Indication: Post transplant lymphoproliferative disorder
     Dosage: UNK UNK, CYCLICAL,(SIX CYCLES OF EPOCH THERAPY,AS A PART OF EPOCH THERAPY)
     Route: 065

REACTIONS (2)
  - Toxicity to various agents [Fatal]
  - Off label use [Unknown]
